FAERS Safety Report 13739579 (Version 1)
Quarter: 2017Q3

REPORT INFORMATION
  Report Type: Spontaneous
  Country: AR (occurrence: AR)
  Receive Date: 20170710
  Receipt Date: 20170710
  Transmission Date: 20171127
  Serious: Yes (Other)
  Sender: FDA-Public Use
  Company Number: PHHY2013AR141872

PATIENT
  Sex: Female

DRUGS (1)
  1. HYDERGINE [Suspect]
     Active Substance: ERGOLOID MESYLATES
     Indication: DIZZINESS
     Dosage: 4.5 MG, DAILY
     Route: 048
     Dates: start: 2008

REACTIONS (5)
  - Memory impairment [Unknown]
  - Feeling cold [Unknown]
  - Ventricular arrhythmia [Unknown]
  - Dementia Alzheimer^s type [Unknown]
  - Dizziness [Unknown]

NARRATIVE: CASE EVENT DATE: 2010
